FAERS Safety Report 7335042-X (Version None)
Quarter: 2011Q1

REPORT INFORMATION
  Report Type: 
  Country: None (occurrence: None)
  Receive Date: 20110307
  Receipt Date: 20110301
  Transmission Date: 20110831
  Serious: Yes (Death, Hospitalization)
  Sender: FDA-Public Use
  Company Number: CA-ROCHE-763039

PATIENT
  Sex: Female

DRUGS (10)
  1. CLONAZEPAM [Suspect]
     Route: 065
  2. EZETROL [Concomitant]
  3. ATIVAN [Suspect]
     Route: 065
  4. CIPRALEX [Suspect]
     Indication: DEPRESSION
     Route: 065
  5. METOPROLOL [Suspect]
     Route: 065
  6. WARFARIN SODIUM [Suspect]
     Indication: THROMBOSIS PROPHYLAXIS
     Route: 048
     Dates: start: 20090904
  7. GLICLAZIDE [Concomitant]
  8. APIXABAN [Suspect]
     Indication: THROMBOSIS PROPHYLAXIS
     Route: 048
     Dates: start: 20090904
  9. PROPAFENONE [Suspect]
     Route: 065
     Dates: start: 20100301
  10. METFORMIN [Concomitant]

REACTIONS (4)
  - HYPOTENSION [None]
  - SUICIDAL IDEATION [None]
  - HYPOXIA [None]
  - OVERDOSE [None]
